FAERS Safety Report 10543171 (Version 1)
Quarter: 2014Q4

REPORT INFORMATION
  Report Type: Spontaneous
  Country: US (occurrence: None)
  Receive Date: 20141023
  Receipt Date: 20141023
  Transmission Date: 20150529
  Serious: Yes (Other)
  Sender: FDA-Public Use
  Company Number: US-H14001-14-01071

PATIENT
  Sex: Female

DRUGS (1)
  1. VALPROIC ACID (VALPROIC ACID) (UNKNOWN) (VALPROIC ACID) [Suspect]
     Active Substance: VALPROIC ACID
     Indication: BIPOLAR DISORDER

REACTIONS (2)
  - Ammonia increased [None]
  - Pancreatitis chronic [None]
